FAERS Safety Report 6916847-3 (Version None)
Quarter: 2010Q3

REPORT INFORMATION
  Report Type: 
  Country: None (occurrence: None)
  Receive Date: 20100809
  Receipt Date: 20100809
  Transmission Date: 20110219
  Serious: Yes (Death)
  Sender: FDA-Public Use
  Company Number: None

PATIENT
  Age: 91 Year
  Sex: Female

DRUGS (1)
  1. BACTRIM DS [Suspect]
     Indication: CELLULITIS
     Dosage: 1 TAB PO BID
     Route: 048

REACTIONS (8)
  - AGGRESSION [None]
  - CARDIAC FAILURE CONGESTIVE [None]
  - CONFUSIONAL STATE [None]
  - HYPOXIA [None]
  - MENTAL STATUS CHANGES [None]
  - METABOLIC ACIDOSIS [None]
  - PERIPHERAL VASCULAR DISORDER [None]
  - RENAL FAILURE ACUTE [None]
